FAERS Safety Report 7704703-2 (Version None)
Quarter: 2011Q3

REPORT INFORMATION
  Report Type: 
  Country: None (occurrence: None)
  Receive Date: 20110823
  Receipt Date: 20100713
  Transmission Date: 20111222
  Serious: Yes (Other)
  Sender: FDA-Public Use
  Company Number: US-BRISTOL-MYERS SQUIBB COMPANY-15191547

PATIENT
  Age: 85 Year
  Sex: Female
  Weight: 62 kg

DRUGS (3)
  1. ESTRACE [Suspect]
     Indication: DRY SKIN
     Route: 065
  2. ACTONEL [Concomitant]
  3. DETROL LA [Suspect]
     Indication: URINARY INCONTINENCE
     Dosage: SOFT MODIFIED RELEASE CAPSULES, INCREASED TO 4MG 2 TIMES A DAY
     Route: 065
     Dates: start: 20060101

REACTIONS (1)
  - RASH [None]
